FAERS Safety Report 12777275 (Version 1)
Quarter: 2016Q3

REPORT INFORMATION
  Report Type: Report from Study
  Country: US (occurrence: US)
  Receive Date: 20160924
  Receipt Date: 20160924
  Transmission Date: 20161109
  Serious: No
  Sender: FDA-Public Use
  Company Number: PHEH2016US024095

PATIENT
  Sex: Male

DRUGS (1)
  1. COSENTYX [Suspect]
     Active Substance: SECUKINUMAB
     Indication: PSORIASIS
     Dosage: 3600 MG, QW
     Route: 058

REACTIONS (4)
  - Malaise [Unknown]
  - Viral infection [Unknown]
  - Nausea [Unknown]
  - Vomiting [Unknown]
